FAERS Safety Report 19149968 (Version 33)
Quarter: 2023Q2

REPORT INFORMATION
  Report Type: Report from Study
  Country: US (occurrence: US)
  Receive Date: 20210417
  Receipt Date: 20230502
  Transmission Date: 20230722
  Serious: Yes (Hospitalization, Other)
  Sender: FDA-Public Use
  Company Number: US-NOVARTISPH-NVSC2021US083345

PATIENT
  Age: 51 Year
  Sex: Female
  Weight: 86.183 kg

DRUGS (12)
  1. TREPROSTINIL [Suspect]
     Active Substance: TREPROSTINIL
     Indication: Pulmonary arterial hypertension
     Dosage: 39 NG/KG/MIN, CONT (STRENGTH: 2.5 MG/ML)
     Route: 042
     Dates: start: 20210202
  2. TREPROSTINIL [Suspect]
     Active Substance: TREPROSTINIL
     Dosage: 39 NG/KG/MIN, CONT (STRENGTH: 2.5 MG/ML)
     Route: 042
  3. TREPROSTINIL [Suspect]
     Active Substance: TREPROSTINIL
     Dosage: 30 (NG/KG/MIN), CONT ((STRENGTH: 1 MG/ML)
     Route: 042
  4. TREPROSTINIL [Suspect]
     Active Substance: TREPROSTINIL
     Dosage: 39 (NG/KG/MIN) CONT ((STRENGTH: 1 MG/ML)
     Route: 042
  5. TREPROSTINIL [Suspect]
     Active Substance: TREPROSTINIL
     Dosage: 35 (NG/KG/MIN) CONT (STRENGTH: 1 MG/ML)
     Route: 042
  6. TREPROSTINIL [Suspect]
     Active Substance: TREPROSTINIL
     Dosage: 39 (NG/KG/MIN) CONT (STRENGTH: 1 MG/ML)
     Route: 042
     Dates: start: 20210917
  7. TREPROSTINIL [Suspect]
     Active Substance: TREPROSTINIL
     Dosage: 41 (NG/KG/MIN) CONT (STRENGTH: 1 MG/ML)
     Route: 042
  8. TREPROSTINIL [Suspect]
     Active Substance: TREPROSTINIL
     Dosage: 39 NG/KG/MIN, CONT (STRENGTH: 2.5 MG/ML)
     Route: 042
  9. TREPROSTINIL [Suspect]
     Active Substance: TREPROSTINIL
     Dosage: 39 NG/KG/MIN, CONT (STRENGTH: 2.5 MG/ML)
     Route: 042
  10. TREPROSTINIL [Suspect]
     Active Substance: TREPROSTINIL
     Dosage: 39NG/KG/MIN, CONT
     Route: 042
  11. ADEMPAS [Suspect]
     Active Substance: RIOCIGUAT
     Indication: Product used for unknown indication
     Dosage: 0.5 MG
     Route: 065
  12. OPSUMIT [Concomitant]
     Active Substance: MACITENTAN
     Indication: Product used for unknown indication
     Dosage: UNK
     Route: 065

REACTIONS (26)
  - Hypervolaemia [Unknown]
  - Hypoxia [Unknown]
  - Infection [Unknown]
  - Hypoglycaemia [Unknown]
  - Lethargy [Unknown]
  - Urinary tract infection [Unknown]
  - Complication associated with device [Unknown]
  - Catheter site haemorrhage [Unknown]
  - Asthenia [Unknown]
  - Hypotension [Unknown]
  - Dyspnoea [Unknown]
  - Vascular device infection [Unknown]
  - COVID-19 [Recovered/Resolved]
  - Diabetes mellitus [Unknown]
  - Pulmonary oedema [Unknown]
  - Uterine cancer [Unknown]
  - Nasopharyngitis [Unknown]
  - Sneezing [Unknown]
  - Dry eye [Unknown]
  - Lacrimation increased [Unknown]
  - Gait disturbance [Unknown]
  - Abdominal pain [Unknown]
  - Device malfunction [Unknown]
  - Radiation injury [Unknown]
  - Pain in extremity [Unknown]
  - Fatigue [Unknown]

NARRATIVE: CASE EVENT DATE: 20210309
